FAERS Safety Report 20050061 (Version 1)
Quarter: 2021Q4

REPORT INFORMATION
  Report Type: Spontaneous
  Country: US (occurrence: None)
  Receive Date: 20211109
  Receipt Date: 20211109
  Transmission Date: 20220303
  Serious: Yes (Other)
  Sender: FDA-Public Use
  Company Number: None

PATIENT
  Age: 31 Year
  Sex: Female
  Weight: 73.35 kg

DRUGS (7)
  1. MONTELUKAST SODIUM [Suspect]
     Active Substance: MONTELUKAST SODIUM
     Indication: Multiple allergies
     Dosage: OTHER QUANTITY : 60 TABLET(S);?FREQUENCY : TWICE A DAY;?
     Route: 048
     Dates: start: 20211104, end: 20211106
  2. CETIRIZINE HYDROCHLORIDE [Concomitant]
     Active Substance: CETIRIZINE HYDROCHLORIDE
  3. XOPENEX HFA 45 MCG [Concomitant]
  4. UNSPECIFIED INGREDIENT [Concomitant]
     Active Substance: UNSPECIFIED INGREDIENT
  5. VITAMIN C [Concomitant]
     Active Substance: ASCORBIC ACID
  6. IRON [Concomitant]
     Active Substance: IRON
  7. VITAMIN D [Concomitant]
     Active Substance: VITAMIN D NOS

REACTIONS (9)
  - Depression [None]
  - Fatigue [None]
  - Panic attack [None]
  - Paranoia [None]
  - Discomfort [None]
  - Mobility decreased [None]
  - Chest pain [None]
  - Muscle tightness [None]
  - Abnormal dreams [None]

NARRATIVE: CASE EVENT DATE: 20211104
